FAERS Safety Report 4544915-2 (Version None)
Quarter: 2005Q1

REPORT INFORMATION
  Report Type: 
  Country: None (occurrence: None)
  Receive Date: 20050104
  Receipt Date: 20041220
  Transmission Date: 20050727
  Serious: Yes (Hospitalization)
  Sender: FDA-Public Use
  Company Number: 2004-BP-14103MX

PATIENT
  Age: 74 Year
  Sex: Male

DRUGS (1)
  1. SECOTEX CAPSULES 0.4MG(KA) (TAMSULOSIN HYDROCHLORIDE) [Suspect]
     Indication: BENIGN PROSTATIC HYPERPLASIA
     Dosage: 0.4 MG (0.4 MG, 1 KA OD)
     Route: 048

REACTIONS (1)
  - HOSPITALISATION [None]
